FAERS Safety Report 12787292 (Version 1)
Quarter: 2016Q3

REPORT INFORMATION
  Report Type: Spontaneous
  Country: FR (occurrence: FR)
  Receive Date: 20160927
  Receipt Date: 20160927
  Transmission Date: 20161109
  Serious: Yes (Hospitalization)
  Sender: FDA-Public Use
  Company Number: FR-BEH-2014043272

PATIENT
  Age: 64 Year
  Sex: Male

DRUGS (6)
  1. HYDROCHLOROTHIAZIDE. [Concomitant]
     Active Substance: HYDROCHLOROTHIAZIDE
  2. NEBIVOLOL. [Concomitant]
     Active Substance: NEBIVOLOL
  3. VALSARTAN. [Concomitant]
     Active Substance: VALSARTAN
  4. HIZENTRA [Suspect]
     Active Substance: HUMAN IMMUNOGLOBULIN G
     Indication: IMMUNODEFICIENCY COMMON VARIABLE
     Dosage: 18 G, QW
     Route: 058
     Dates: start: 2012, end: 20140509
  5. CRESTOR [Concomitant]
     Active Substance: ROSUVASTATIN CALCIUM
  6. KARDEGIC [Concomitant]
     Active Substance: ASPIRIN LYSINE

REACTIONS (7)
  - Pyrexia [Recovered/Resolved]
  - Injection site eczema [Recovered/Resolved]
  - Cough [Recovered/Resolved]
  - Rash macular [Recovered/Resolved]
  - Rash erythematous [Recovered/Resolved]
  - Rash [Recovered/Resolved]
  - Skin warm [Recovered/Resolved]

NARRATIVE: CASE EVENT DATE: 201405
